FAERS Safety Report 6272741-5 (Version None)
Quarter: 2009Q3

REPORT INFORMATION
  Report Type: 
  Country: None (occurrence: None)
  Receive Date: 20090717
  Receipt Date: 20090709
  Transmission Date: 20100115
  Serious: Yes (Other)
  Sender: FDA-Public Use
  Company Number: BR-ABBOTT-09P-020-0584474-00

PATIENT
  Sex: Female
  Weight: 68 kg

DRUGS (12)
  1. HUMIRA [Suspect]
     Indication: RHEUMATOID ARTHRITIS
     Route: 058
     Dates: start: 20080101, end: 20080801
  2. HUMIRA [Suspect]
     Dates: start: 20090311, end: 20090326
  3. HUMIRA [Suspect]
     Dates: start: 20090706
  4. PREDNISONE [Concomitant]
     Indication: RHEUMATOID ARTHRITIS
     Route: 048
     Dates: start: 20050101
  5. METHOTREXATE [Concomitant]
     Indication: RHEUMATOID ARTHRITIS
     Route: 048
     Dates: start: 20050101
  6. PARACETAMOL [Concomitant]
     Indication: ARTHRALGIA
     Route: 048
     Dates: start: 19990101
  7. IBUPROFEN [Concomitant]
     Indication: ANTIINFLAMMATORY THERAPY
     Route: 048
     Dates: start: 19990101
  8. AMITRIPTYLINE [Concomitant]
     Indication: DEPRESSION
     Route: 048
     Dates: start: 19990101
  9. LOSARTAN POTASSIUM AND HYDROCHLOROTHIAZIDE [Concomitant]
     Indication: HYPERTENSION
     Dosage: 50/12.5 MG, 1 IN 24 HOURS
     Route: 048
     Dates: start: 20050101
  10. LOSARTAN POTASSIUM AND HYDROCHLOROTHIAZIDE [Concomitant]
     Indication: NECK PAIN
  11. LOSARTAN POTASSIUM AND HYDROCHLOROTHIAZIDE [Concomitant]
     Indication: HEADACHE
  12. OMEPRAZOLE [Concomitant]
     Indication: GASTRITIS
     Route: 048
     Dates: start: 20000101

REACTIONS (8)
  - ARTHRALGIA [None]
  - FOOT DEFORMITY [None]
  - HEADACHE [None]
  - JOINT SWELLING [None]
  - LABORATORY TEST ABNORMAL [None]
  - NECK PAIN [None]
  - NODULE ON EXTREMITY [None]
  - OEDEMA PERIPHERAL [None]
